FAERS Safety Report 12183604 (Version 1)
Quarter: 2016Q1

REPORT INFORMATION
  Report Type: Spontaneous
  Country: US (occurrence: None)
  Receive Date: 20160315
  Receipt Date: 20160315
  Transmission Date: 20160526
  Serious: No
  Sender: FDA-Public Use
  Company Number: None

PATIENT
  Age: 22 Year
  Sex: Female

DRUGS (1)
  1. IMATINIB 100 MG SUN PHARMA [Suspect]
     Active Substance: IMATINIB
     Indication: GASTROINTESTINAL STROMAL TUMOUR
     Route: 048
     Dates: start: 20160119, end: 20160119

REACTIONS (5)
  - Fatigue [None]
  - Flushing [None]
  - Drug hypersensitivity [None]
  - Vomiting [None]
  - Pharyngeal oedema [None]

NARRATIVE: CASE EVENT DATE: 20160119
